FAERS Safety Report 9760720 (Version 1)
Quarter: 2013Q4

REPORT INFORMATION
  Report Type: Spontaneous
  Country: US (occurrence: US)
  Receive Date: 20131216
  Receipt Date: 20131216
  Transmission Date: 20140711
  Serious: No
  Sender: FDA-Public Use
  Company Number: US-BIOGENIDEC-2013BI101420

PATIENT
  Age: 70 Year
  Sex: Male

DRUGS (15)
  1. TECFIDERA [Suspect]
     Indication: MULTIPLE SCLEROSIS
     Route: 048
     Dates: start: 20130903
  2. AMITRIPTYLINE HCL [Concomitant]
  3. AMPYRA [Concomitant]
  4. ASPIRIN [Concomitant]
  5. CALCIUM CITRATE [Concomitant]
  6. CIALIS [Concomitant]
  7. LASIX [Concomitant]
  8. LISINOPRIL [Concomitant]
  9. METFORMIN HCL [Concomitant]
  10. PANTOPRAZOLE SODIUM [Concomitant]
  11. QUINAPRIL- HYDROCHLOROTHIAZIDE [Concomitant]
  12. QUINIDINE SULFATE [Concomitant]
  13. TEMAZEPAM [Concomitant]
  14. VESICARE [Concomitant]
  15. VITAMIN D [Concomitant]

REACTIONS (1)
  - Rash [Unknown]
